FAERS Safety Report 12429017 (Version 1)
Quarter: 2016Q2

REPORT INFORMATION
  Report Type: Spontaneous
  Country: US (occurrence: None)
  Receive Date: 20160601
  Receipt Date: 20160601
  Transmission Date: 20160815
  Serious: No
  Sender: FDA-Public Use
  Company Number: None

PATIENT
  Age: 68 Year
  Sex: Male

DRUGS (7)
  1. ASPIRIN. [Concomitant]
     Active Substance: ASPIRIN
  2. ZYTIGA [Suspect]
     Active Substance: ABIRATERONE ACETATE
     Indication: PROSTATE CANCER
     Route: 048
     Dates: start: 20160406
  3. ATORVASTATIN [Concomitant]
     Active Substance: ATORVASTATIN
  4. CASODEX [Concomitant]
     Active Substance: BICALUTAMIDE
  5. CARVEDILOL. [Concomitant]
     Active Substance: CARVEDILOL
  6. LUPRON DEPOT INJ [Concomitant]
  7. BICALUTAMIDE. [Concomitant]
     Active Substance: BICALUTAMIDE

REACTIONS (2)
  - Fatigue [None]
  - Dizziness postural [None]

NARRATIVE: CASE EVENT DATE: 201604
